APPROVED DRUG PRODUCT: VALPIN 50
Active Ingredient: ANISOTROPINE METHYLBROMIDE
Strength: 50MG
Dosage Form/Route: TABLET;ORAL
Application: N013428 | Product #001
Applicant: ENDO PHARMACEUTICALS INC
Approved: Approved Prior to Jan 1, 1982 | RLD: No | RS: No | Type: DISCN